FAERS Safety Report 18209704 (Version 1)
Quarter: 2020Q3

REPORT INFORMATION
  Report Type: Report from Study
  Country: DE (occurrence: DE)
  Receive Date: 20200828
  Receipt Date: 20200828
  Transmission Date: 20201103
  Serious: Yes (Other)
  Sender: FDA-Public Use
  Company Number: DE-PORTOLA PHARMACEUTICALS, INC.-2018DE000062

PATIENT
  Age: 88 Year
  Sex: Female

DRUGS (10)
  1. URAPIDIL [Concomitant]
     Active Substance: URAPIDIL
     Dosage: UNK
     Dates: start: 20180324
  2. RIVAROXABAN [Concomitant]
     Active Substance: RIVAROXABAN
     Dosage: UNK
     Dates: end: 20180324
  3. VIGANTOLETTEN [Concomitant]
     Active Substance: CHOLECALCIFEROL
  4. TORASEMIDE [Concomitant]
     Active Substance: TORSEMIDE
     Dosage: UNK
  5. ANDEXXA [Suspect]
     Active Substance: ANDEXANET ALFA
     Dosage: 960 MG, ONCE
     Route: 042
     Dates: start: 20180324, end: 20180324
  6. ANDEXXA [Suspect]
     Active Substance: ANDEXANET ALFA
     Indication: PROCOAGULANT THERAPY
     Dosage: 800 MG, ONCE
     Route: 040
     Dates: start: 20180324, end: 20180324
  7. MEMANTINE. [Concomitant]
     Active Substance: MEMANTINE
  8. CARBIMAZOL [Concomitant]
     Active Substance: CARBIMAZOLE
     Dosage: UNK
  9. NEPRESOL                           /00007602/ [Concomitant]
     Active Substance: HYDRALAZINE HYDROCHLORIDE
     Dosage: UNK
     Dates: start: 20180324, end: 20180325
  10. BISOPROLOL [Concomitant]
     Active Substance: BISOPROLOL
     Dosage: UNK

REACTIONS (1)
  - Cerebrovascular accident [Recovered/Resolved]

NARRATIVE: CASE EVENT DATE: 20180325
